FAERS Safety Report 19520951 (Version 1)
Quarter: 2021Q3

REPORT INFORMATION
  Report Type: Spontaneous
  Country: AU (occurrence: AU)
  Receive Date: 20210712
  Receipt Date: 20210712
  Transmission Date: 20211014
  Serious: Yes (Hospitalization)
  Sender: FDA-Public Use
  Company Number: AU-LUPIN PHARMACEUTICALS INC.-2021-11584

PATIENT
  Age: 36 Year
  Sex: Male
  Weight: 48 kg

DRUGS (5)
  1. AZITHROMYCIN ANHYDROUS. [Concomitant]
     Active Substance: AZITHROMYCIN ANHYDROUS
     Indication: EVIDENCE BASED TREATMENT
     Dosage: UNK
     Route: 065
  2. SULFAMETHOXAZOLE AND TRIMETHOPRIM [Concomitant]
     Active Substance: SULFAMETHOXAZOLE\TRIMETHOPRIM
     Indication: PULMONARY NOCARDIOSIS
     Dosage: UNK UNK, BID
     Route: 048
  3. PREDNISOLONE. [Concomitant]
     Active Substance: PREDNISOLONE
     Indication: CHRONIC OBSTRUCTIVE PULMONARY DISEASE
     Dosage: 1 MG/KG IN THE CONTEXT OF THE PATIENT WEIGHING 48 KG
     Route: 065
  4. AMIKACIN. [Concomitant]
     Active Substance: AMIKACIN
     Indication: PULMONARY NOCARDIOSIS
     Dosage: 1 GRAM, TOTAL
     Route: 042
  5. CEFTRIAXONE. [Suspect]
     Active Substance: CEFTRIAXONE
     Indication: PULMONARY NOCARDIOSIS
     Dosage: 2 GRAM, QD
     Route: 065

REACTIONS (1)
  - Drug ineffective [Unknown]
